FAERS Safety Report 9018056 (Version 2)
Quarter: 2013Q1

REPORT INFORMATION
  Report Type: Report from Study
  Country: US (occurrence: US)
  Receive Date: 20130117
  Receipt Date: 20130129
  Transmission Date: 20140127
  Serious: Yes (Hospitalization, Other)
  Sender: FDA-Public Use
  Company Number: US-ABBOTT-13P-163-1035323-00

PATIENT
  Age: 32 Year
  Sex: Male

DRUGS (5)
  1. HUMIRA [Suspect]
     Indication: COLITIS ULCERATIVE
     Dosage: LOADING DOSE
     Dates: start: 20121201, end: 20121201
  2. HYDROCODONE [Suspect]
     Indication: PROCEDURAL PAIN
  3. CITALOPRAM [Concomitant]
     Indication: ANTIDEPRESSANT THERAPY
     Dosage: 20MG DAILY
  4. CITALOPRAM [Concomitant]
     Indication: ANXIETY
  5. PROTONIX [Concomitant]
     Indication: PRODUCT USED FOR UNKNOWN INDICATION
     Dosage: 40MG DAILY

REACTIONS (4)
  - Endoscopy gastrointestinal abnormal [Unknown]
  - Colitis ulcerative [Recovering/Resolving]
  - Pruritus [Unknown]
  - Dermatitis allergic [Unknown]
